FAERS Safety Report 5001424-4 (Version None)
Quarter: 2006Q2

REPORT INFORMATION
  Report Type: 
  Country: None (occurrence: None)
  Receive Date: 20060512
  Receipt Date: 20060405
  Transmission Date: 20061013
  Serious: Yes (Hospitalization, Disabling)
  Sender: FDA-Public Use
  Company Number: US-MERCK-0604USA00672

PATIENT
  Age: 60 Year
  Sex: Male
  Weight: 109 kg

DRUGS (10)
  1. VIOXX [Suspect]
     Indication: ARTHRITIS
     Route: 048
     Dates: start: 20030101, end: 20040401
  2. SOLU-MEDROL [Concomitant]
     Route: 065
  3. LEVAQUIN [Concomitant]
     Route: 065
  4. NEURONTIN [Concomitant]
     Route: 065
  5. LIPITOR [Concomitant]
     Route: 065
  6. SINGULAIR [Concomitant]
     Route: 065
  7. ZETIA [Concomitant]
     Route: 065
  8. XOPENEX [Concomitant]
     Route: 065
  9. PROTONIX [Concomitant]
     Route: 065
  10. SYNTHROID [Concomitant]
     Route: 065

REACTIONS (1)
  - MYOCARDIAL INFARCTION [None]
